FAERS Safety Report 19382715 (Version 2)
Quarter: 2021Q3

REPORT INFORMATION
  Report Type: Spontaneous
  Country: US (occurrence: US)
  Receive Date: 20210607
  Receipt Date: 20210713
  Transmission Date: 20211014
  Serious: No
  Sender: FDA-Public Use
  Company Number: US-GW PHARMA-202106USGW02747

PATIENT

DRUGS (1)
  1. EPIDIOLEX [Suspect]
     Active Substance: CANNABIDIOL
     Indication: LENNOX-GASTAUT SYNDROME
     Dosage: 4.24 MG/KG/DAY, 150 MILLIGRAM, BID
     Route: 048
     Dates: start: 20200615

REACTIONS (6)
  - Seizure [Unknown]
  - Abnormal behaviour [Unknown]
  - Psychomotor hyperactivity [Unknown]
  - Weight increased [Unknown]
  - Drooling [Unknown]
  - Therapeutic product effect decreased [Unknown]
